FAERS Safety Report 22041587 (Version 1)
Quarter: 2023Q1

REPORT INFORMATION
  Report Type: Spontaneous
  Country: US (occurrence: None)
  Receive Date: 20230227
  Receipt Date: 20230227
  Transmission Date: 20230418
  Serious: Yes (Hospitalization)
  Sender: FDA-Public Use
  Company Number: None

PATIENT
  Sex: Female

DRUGS (19)
  1. MYCOPHENOLIC ACID [Suspect]
     Active Substance: MYCOPHENOLIC ACID
     Indication: Renal transplant
     Dosage: FREQUENCY : EVERY 12 HOURS;?
     Route: 048
     Dates: start: 20200618
  2. ALLOPURINOL [Concomitant]
     Active Substance: ALLOPURINOL
  3. ASPIRIN LOW TAB EC [Concomitant]
  4. CLONAZEPAM [Concomitant]
     Active Substance: CLONAZEPAM
  5. CYMBALTA CAP [Concomitant]
  6. DONEPEZIL TAB [Concomitant]
  7. ELIQUIS [Concomitant]
     Active Substance: APIXABAN
  8. LEVOTHYROXIN TAB [Concomitant]
  9. MAGNESIUM TAB [Concomitant]
  10. MELATONIN TAB [Concomitant]
  11. METFORMIN TAB [Concomitant]
  12. METOPROLOL POW TARTRATE [Concomitant]
  13. MULTIVITAMIN TAB WOMENS [Concomitant]
  14. PRILOSEC OTC TAB [Concomitant]
  15. PROCRIT [Concomitant]
     Active Substance: ERYTHROPOIETIN
  16. REFRESH PLUS DROP OP [Concomitant]
  17. TACROLIMUS [Concomitant]
     Active Substance: TACROLIMUS
  18. TYLENOL TAB [Concomitant]
  19. XANAX XR TAB [Concomitant]

REACTIONS (2)
  - Femur fracture [None]
  - Thrombosis [None]
